FAERS Safety Report 8189017-1 (Version None)
Quarter: 2012Q1

REPORT INFORMATION
  Report Type: 
  Country: None (occurrence: None)
  Receive Date: 20120307
  Receipt Date: 20120301
  Transmission Date: 20120608
  Serious: No
  Sender: FDA-Public Use
  Company Number: US-BIOGENIDEC-2010BI001454

PATIENT
  Age: 42 Year
  Sex: Female

DRUGS (3)
  1. TYSABRI [Suspect]
     Route: 042
     Dates: start: 20120118, end: 20120215
  2. TYSABRI [Suspect]
     Indication: MULTIPLE SCLEROSIS
     Route: 042
     Dates: start: 20071016, end: 20081201
  3. TYSABRI [Suspect]
     Route: 042
     Dates: start: 20091203, end: 20100108

REACTIONS (8)
  - URTICARIA [None]
  - PRURITUS [None]
  - HEMIPARESIS [None]
  - CHEST DISCOMFORT [None]
  - ADVERSE DRUG REACTION [None]
  - ADVERSE REACTION [None]
  - HYPERAESTHESIA [None]
  - INFUSION RELATED REACTION [None]
